FAERS Safety Report 17478459 (Version 1)
Quarter: 2020Q1

REPORT INFORMATION
  Report Type: Report from Study
  Country: BR (occurrence: BR)
  Receive Date: 20200228
  Receipt Date: 20200228
  Transmission Date: 20200409
  Serious: Yes (Other)
  Sender: FDA-Public Use
  Company Number: BR-JNJFOC-20190939596

PATIENT
  Age: 36 Year
  Sex: Male

DRUGS (2)
  1. SIMPONI [Suspect]
     Active Substance: GOLIMUMAB
     Indication: ANKYLOSING SPONDYLITIS
     Route: 058
     Dates: start: 201812
  2. AZULFIDINE [Concomitant]
     Active Substance: SULFASALAZINE

REACTIONS (3)
  - Therapeutic response decreased [Unknown]
  - Pain [Unknown]
  - Rheumatic fever [Recovering/Resolving]

NARRATIVE: CASE EVENT DATE: 20190927
